FAERS Safety Report 7712556-1 (Version None)
Quarter: 2011Q3

REPORT INFORMATION
  Report Type: 
  Country: None (occurrence: None)
  Receive Date: 20110826
  Receipt Date: 20110816
  Transmission Date: 20111222
  Serious: Yes (Other)
  Sender: FDA-Public Use
  Company Number: CA-ELI_LILLY_AND_COMPANY-CA201108004969

PATIENT
  Sex: Female

DRUGS (5)
  1. ZYPREXA [Suspect]
     Dosage: 2.5 MG, EACH EVENING
     Dates: start: 20080701, end: 20090414
  2. CITALOPRAM HYDROBROMIDE [Concomitant]
  3. ZYPREXA [Suspect]
     Dosage: 5 MG, EACH EVENING
  4. LORAZEPAM [Concomitant]
  5. ZYPREXA [Suspect]
     Indication: PSYCHOTIC DISORDER
     Dosage: 7.5 MG, EACH EVENING
     Dates: start: 20020108

REACTIONS (14)
  - TYPE 1 DIABETES MELLITUS [None]
  - FUNGAL INFECTION [None]
  - HYPERKERATOSIS [None]
  - TOOTH INFECTION [None]
  - VAGINAL HAEMORRHAGE [None]
  - LOCALISED INFECTION [None]
  - URINARY TRACT INFECTION [None]
  - ONYCHOGRYPHOSIS [None]
  - HYPERCHOLESTEROLAEMIA [None]
  - WEIGHT INCREASED [None]
  - DIABETIC NEUROPATHY [None]
  - SKIN LESION [None]
  - UPPER RESPIRATORY TRACT INFECTION [None]
  - GASTRITIS [None]
